FAERS Safety Report 8367575-1 (Version None)
Quarter: 2012Q2

REPORT INFORMATION
  Report Type: 
  Country: None (occurrence: None)
  Receive Date: 20120517
  Receipt Date: 20120509
  Transmission Date: 20120825
  Serious: Yes (Other)
  Sender: FDA-Public Use
  Company Number: US-PFIZER INC-2012094881

PATIENT
  Sex: Male
  Weight: 86.168 kg

DRUGS (5)
  1. NEURONTIN [Suspect]
     Dosage: 300 MG, 4X/DAY
     Route: 048
     Dates: start: 20120101, end: 20120421
  2. NEURONTIN [Suspect]
     Indication: PAIN IN EXTREMITY
     Dosage: 300 MG, 3X/DAY
     Route: 048
     Dates: start: 20120101
  3. GABAPENTIN [Suspect]
     Dosage: UNK
  4. ALDACTONE [Suspect]
     Dosage: UNK
  5. NEURONTIN [Suspect]
     Indication: HYPOAESTHESIA
     Dosage: 300 MG, 1X/DAY
     Route: 048
     Dates: start: 20110101, end: 20120101

REACTIONS (4)
  - BALANCE DISORDER [None]
  - FALL [None]
  - DIZZINESS [None]
  - DRUG INEFFECTIVE [None]
